FAERS Safety Report 8222454-5 (Version None)
Quarter: 2012Q1

REPORT INFORMATION
  Report Type: 
  Country: None (occurrence: None)
  Receive Date: 20120320
  Receipt Date: 20120314
  Transmission Date: 20120608
  Serious: Yes (Other)
  Sender: FDA-Public Use
  Company Number: PHEH2012US006043

PATIENT

DRUGS (1)
  1. FANAPT [Suspect]

REACTIONS (1)
  - HYPONATRAEMIA [None]
